FAERS Safety Report 9123894 (Version 1)
Quarter: 2013Q1

REPORT INFORMATION
  Report Type: Spontaneous
  Country: US (occurrence: US)
  Receive Date: 20130227
  Receipt Date: 20130227
  Transmission Date: 20140127
  Serious: Yes (Other)
  Sender: FDA-Public Use
  Company Number: US-BAYER-2013-024238

PATIENT
  Age: 8 Year
  Sex: Male

DRUGS (1)
  1. KOGENATE FS [Suspect]

REACTIONS (4)
  - Rotavirus infection [None]
  - Diarrhoea [None]
  - Abdominal pain [None]
  - Gastrointestinal disorder [None]
